FAERS Safety Report 10293444 (Version 2)
Quarter: 2014Q3

REPORT INFORMATION
  Report Type: Spontaneous
  Country: US (occurrence: US)
  Receive Date: 20140710
  Receipt Date: 20140710
  Transmission Date: 20150326
  Serious: No
  Sender: FDA-Public Use
  Company Number: US-PURDUE-USA-2013-0109673

PATIENT
  Sex: Female

DRUGS (2)
  1. BUTRANS [Suspect]
     Active Substance: BUPRENORPHINE
     Indication: BACK PAIN
     Dosage: 10 MCG/HR, UNK
     Route: 062
     Dates: start: 20140129
  2. BUTRANS [Suspect]
     Active Substance: BUPRENORPHINE
     Dosage: 10 MCG/HR, WEEKLY
     Route: 062
     Dates: start: 201312, end: 201401

REACTIONS (9)
  - Insomnia [Unknown]
  - Application site burn [Not Recovered/Not Resolved]
  - Drug administered at inappropriate site [Unknown]
  - Product adhesion issue [Unknown]
  - Product quality issue [Unknown]
  - Application site pruritus [Not Recovered/Not Resolved]
  - Application site erythema [Recovered/Resolved]
  - Pruritus generalised [Unknown]
  - Drug ineffective [Unknown]

NARRATIVE: CASE EVENT DATE: 201312
